FAERS Safety Report 10068341 (Version 1)
Quarter: 2014Q2

REPORT INFORMATION
  Report Type: Spontaneous
  Country: US (occurrence: US)
  Receive Date: 20140409
  Receipt Date: 20140409
  Transmission Date: 20141212
  Serious: No
  Sender: FDA-Public Use
  Company Number: US-BAUSCH-BL-2014-000852

PATIENT
  Age: 50 Year
  Sex: Male

DRUGS (1)
  1. LATANOPROST OPHTHALMIC SOLUTION 0.005% [Suspect]
     Indication: EYE DISORDER
     Dosage: 1 DROP IN BOTH EYES ONCE A DAY AT NIGHT
     Dates: start: 201401

REACTIONS (1)
  - Dry eye [Recovering/Resolving]
